FAERS Safety Report 17527266 (Version 2)
Quarter: 2020Q1

REPORT INFORMATION
  Report Type: Spontaneous
  Country: US (occurrence: US)
  Receive Date: 20200311
  Receipt Date: 20200312
  Transmission Date: 20200409
  Serious: No
  Sender: FDA-Public Use
  Company Number: US-PFIZER INC-2020104454

PATIENT

DRUGS (1)
  1. DOFETILIDE. [Suspect]
     Active Substance: DOFETILIDE
     Dosage: UNK

REACTIONS (2)
  - Headache [Unknown]
  - Nasopharyngitis [Unknown]
